FAERS Safety Report 5696188-5 (Version None)
Quarter: 2008Q2

REPORT INFORMATION
  Report Type: 
  Country: None (occurrence: None)
  Receive Date: 20080407
  Receipt Date: 20080325
  Transmission Date: 20081010
  Serious: Yes (Death)
  Sender: FDA-Public Use
  Company Number: JP-JNJFOC-20080100850

PATIENT
  Sex: Female
  Weight: 68 kg

DRUGS (10)
  1. RISPERDAL [Suspect]
     Route: 048
  2. RISPERDAL [Suspect]
     Indication: SCHIZOPHRENIA, CATATONIC TYPE
     Route: 048
  3. RISPERDAL [Suspect]
     Route: 048
  4. ZOTEPINE [Concomitant]
     Route: 048
  5. ZOTEPINE [Concomitant]
     Route: 048
  6. ZOTEPINE [Concomitant]
     Indication: SCHIZOPHRENIA, CATATONIC TYPE
     Route: 048
  7. FLUNITRAZEPAM [Concomitant]
  8. NITRAZEPAM [Concomitant]
  9. VALPROATE SODIUM [Concomitant]
  10. SENNOSIDE [Concomitant]

REACTIONS (1)
  - ACCIDENT [None]
